FAERS Safety Report 4689963-7 (Version None)
Quarter: 2005Q2

REPORT INFORMATION
  Report Type: 
  Country: None (occurrence: None)
  Receive Date: 20050608
  Receipt Date: 20050303
  Transmission Date: 20051028
  Serious: Yes (Other)
  Sender: FDA-Public Use
  Company Number: 397436

PATIENT
  Age: 17 Year
  Sex: Male
  Weight: 81.6 kg

DRUGS (1)
  1. ACCUTANE [Suspect]
     Indication: ACNE CYSTIC
     Dosage: 2 PER DAY ORAL
     Route: 048
     Dates: start: 20040515, end: 20041215

REACTIONS (2)
  - BLOOD CHOLESTEROL [None]
  - LIPIDS INCREASED [None]
